FAERS Safety Report 20450601 (Version 1)
Quarter: 2022Q1

REPORT INFORMATION
  Report Type: Spontaneous
  Country: US (occurrence: None)
  Receive Date: 20220209
  Receipt Date: 20220209
  Transmission Date: 20220423
  Serious: Yes (Death, Life-Threatening, Hospitalization, Disabling)
  Sender: FDA-Public Use
  Company Number: None

PATIENT
  Age: 65 Year
  Sex: Female
  Weight: 66.6 kg

DRUGS (1)
  1. REMDESIVIR [Suspect]
     Active Substance: REMDESIVIR
     Indication: COVID-19
     Dosage: OTHER FREQUENCY : 5 DAYS;?OTHER ROUTE : IV;?
     Route: 050
     Dates: end: 20220107

REACTIONS (4)
  - Intentional product use issue [None]
  - Dyspnoea [None]
  - Asthenia [None]
  - Death [None]

NARRATIVE: CASE EVENT DATE: 20211229
